FAERS Safety Report 8477913-7 (Version None)
Quarter: 2012Q2

REPORT INFORMATION
  Report Type: 
  Country: None (occurrence: None)
  Receive Date: 20120629
  Receipt Date: 20120625
  Transmission Date: 20120825
  Serious: Yes (Other)
  Sender: FDA-Public Use
  Company Number: IT-SANOFI-AVENTIS-2012SA042436

PATIENT
  Age: 72 Year
  Sex: Male

DRUGS (4)
  1. CABAZITAXEL [Suspect]
     Indication: PROSTATE CANCER METASTATIC
     Route: 042
     Dates: start: 20120518, end: 20120518
  2. BIFRIL [Concomitant]
  3. BISOPROLOL FUMARATE [Concomitant]
  4. POLASE [Concomitant]

REACTIONS (1)
  - EJECTION FRACTION DECREASED [None]
